FAERS Safety Report 4949565-1 (Version None)
Quarter: 2006Q1

REPORT INFORMATION
  Report Type: 
  Country: None (occurrence: None)
  Receive Date: 20060316
  Receipt Date: 20060303
  Transmission Date: 20060701
  Serious: Yes (Hospitalization)
  Sender: FDA-Public Use
  Company Number: 222997

PATIENT
  Age: 23 Year
  Sex: Female

DRUGS (2)
  1. RITUXAN [Suspect]
     Indication: THROMBOCYTOPENIA
     Dates: start: 20050801
  2. ANTIBIOTIC (ANTIBIOTICS) [Concomitant]

REACTIONS (5)
  - CARDIAC FAILURE [None]
  - ENDOCARDITIS [None]
  - IMMUNOGLOBULINS DECREASED [None]
  - LUPUS ENDOCARDITIS [None]
  - MITRAL VALVE INCOMPETENCE [None]
